FAERS Safety Report 7402400-4 (Version None)
Quarter: 2011Q2

REPORT INFORMATION
  Report Type: 
  Country: None (occurrence: None)
  Receive Date: 20110408
  Receipt Date: 20110325
  Transmission Date: 20111010
  Serious: Yes (Death)
  Sender: FDA-Public Use
  Company Number: GB-JNJFOC-20110310999

PATIENT
  Sex: Male
  Weight: 59 kg

DRUGS (3)
  1. HYDROXYCHLOROQUINE SULFATE [Concomitant]
  2. METHOTREXATE [Concomitant]
  3. REMICADE [Suspect]
     Indication: RHEUMATOID ARTHRITIS
     Route: 042

REACTIONS (3)
  - MYELODYSPLASTIC SYNDROME [None]
  - CHOLECYSTITIS [None]
  - CARDIAC FAILURE CONGESTIVE [None]
